FAERS Safety Report 5491552-1 (Version None)
Quarter: 2007Q4

REPORT INFORMATION
  Report Type: 
  Country: None (occurrence: None)
  Receive Date: 20071019
  Receipt Date: 20071019
  Transmission Date: 20080405
  Serious: Yes (Hospitalization)
  Sender: FDA-Public Use
  Company Number: None

PATIENT
  Sex: Male
  Weight: 61.3 kg

DRUGS (7)
  1. CYCLOSPORINE [Suspect]
     Indication: PROPHYLAXIS AGAINST GRAFT VERSUS HOST DISEASE
     Dosage: 50 MG TWICE DAILY ORAL
     Route: 048
     Dates: start: 20070812, end: 20071012
  2. FLUCONAZOLE [Concomitant]
  3. CIPRO [Concomitant]
  4. LIPITOR [Concomitant]
  5. MMF [Concomitant]
  6. ACTIGALL [Concomitant]
  7. FINASTENIDE [Concomitant]

REACTIONS (1)
  - RENAL FAILURE ACUTE [None]
